FAERS Safety Report 9259009 (Version 1)
Quarter: 2013Q2

REPORT INFORMATION
  Report Type: Spontaneous
  Country: SE (occurrence: SE)
  Receive Date: 20130426
  Receipt Date: 20130426
  Transmission Date: 20140414
  Serious: Yes (Death, Life-Threatening)
  Sender: FDA-Public Use
  Company Number: SE-ROXANE LABORATORIES, INC.-2013-RO-00568RO

PATIENT
  Age: 30 Year
  Sex: Male

DRUGS (7)
  1. BUPRENORPHINE HYDROCHLORIDE [Suspect]
  2. CARBAMAZEPINE [Suspect]
  3. PROMETAZINE [Suspect]
  4. LEVO-MEPROMAZIN [Suspect]
  5. ALIMEMAZINE [Suspect]
  6. MIRTAZAPINE [Suspect]
  7. PREGABALINE [Suspect]

REACTIONS (4)
  - Aspiration [Fatal]
  - Accidental overdose [Fatal]
  - Toxicity to various agents [Unknown]
  - Accidental death [None]
